FAERS Safety Report 9031362 (Version 1)
Quarter: 2013Q1

REPORT INFORMATION
  Report Type: Spontaneous
  Country: CN (occurrence: CN)
  Receive Date: 20130124
  Receipt Date: 20130124
  Transmission Date: 20140127
  Serious: Yes (Other)
  Sender: FDA-Public Use
  Company Number: PHHY2013CN005681

PATIENT
  Age: 10 Month
  Sex: Female
  Weight: 9 kg

DRUGS (4)
  1. LEVETIRACETAM [Suspect]
     Indication: POST-TRAUMATIC EPILEPSY
     Dosage: 9.25 MG/KG, UNK
  2. LEVETIRACETAM [Suspect]
     Dosage: 13.8 MG/KG, UNK
  3. LEVETIRACETAM [Suspect]
     Dosage: 18.5 MG/KG, UNK
  4. LEVETIRACETAM [Suspect]
     Dosage: 27.8 MG/KG, UNK

REACTIONS (3)
  - Blood creatine phosphokinase MB increased [Recovered/Resolved]
  - Blood alkaline phosphatase increased [Recovered/Resolved]
  - Blood lactate dehydrogenase increased [Recovered/Resolved]
